FAERS Safety Report 26200232 (Version 1)
Quarter: 2025Q4

REPORT INFORMATION
  Report Type: Spontaneous
  Country: CA (occurrence: None)
  Receive Date: 20251225
  Receipt Date: 20251225
  Transmission Date: 20260117
  Serious: Yes (Hospitalization, Disabling, Other)
  Sender: ORGANON
  Company Number: CA-ORGANON-O2512CAN001966

PATIENT
  Age: 40 Year
  Sex: Male
  Weight: 120 kg

DRUGS (8)
  1. ALENDRONATE [Suspect]
     Active Substance: ALENDRONATE SODIUM
     Indication: Osteoporosis prophylaxis
     Dosage: 1 DOSAGE FORM, 1 EVERY 1 WEEKS
     Route: 061
  2. CISPLATIN [Concomitant]
     Active Substance: CISPLATIN
     Dosage: UNK (SOLUTION INTRAVENOUS)
     Route: 065
  3. DEXAMETHASONE [Concomitant]
     Active Substance: DEXAMETHASONE
     Dosage: UNK
     Route: 065
  4. DOCETAXEL [Concomitant]
     Active Substance: DOCETAXEL
     Dosage: UNK (SOLUTION INTRAVENOUS)
     Route: 065
  5. FLUOROURACIL [Concomitant]
     Active Substance: FLUOROURACIL
     Dosage: UNK (SOLUTION INTRAVENOUS)
     Route: 065
  6. PEGASPARGASE [Concomitant]
     Active Substance: PEGASPARGASE
     Dosage: UNK
  7. SERTRALINE [Concomitant]
     Active Substance: SERTRALINE HYDROCHLORIDE
     Dosage: UNK
     Route: 065
  8. VRAYLAR [Concomitant]
     Active Substance: CARIPRAZINE
     Dosage: UNK
     Route: 065

REACTIONS (1)
  - Osteonecrosis [Not Recovered/Not Resolved]
